FAERS Safety Report 9837728 (Version 1)
Quarter: 2013Q4

REPORT INFORMATION
  Report Type: Spontaneous
  Country: US (occurrence: None)
  Receive Date: 20131205
  Receipt Date: 20131205
  Transmission Date: 20140711
  Serious: No
  Sender: FDA-Public Use
  Company Number: 163-POMAL-13082206

PATIENT
  Age: 53 Year
  Sex: Male

DRUGS (9)
  1. POMALYST (POMALIDOMIDE) (CAPSULES) [Suspect]
     Indication: PLASMA CELL MYELOMA
     Route: 048
     Dates: start: 20130724, end: 2013
  2. ACYCLOVIR (ACICLOVIR) (ACICLOVIR) [Concomitant]
  3. APIDRA (INSULIN GLULISINE) [Concomitant]
  4. ASPIRINE (ACETYLSALICYLIC ACID) [Concomitant]
  5. DEXAMETHASONE (DEXAMETHASONE) [Concomitant]
  6. LEVEMIR FLEXPEN (INSULIN DETEMIR) [Concomitant]
  7. MAGNESIUM OXYDE (MAGNESIUM OXIDE) [Concomitant]
  8. OXYCODONE HCL (OXYCODONE HYDROCHLORIDE) [Concomitant]
  9. RAMIDRONATE DISODIUM (PAMIDRONATE DISODIUM) [Concomitant]

REACTIONS (1)
  - Migraine [None]
